FAERS Safety Report 8486906-5 (Version None)
Quarter: 2012Q3

REPORT INFORMATION
  Report Type: 
  Country: None (occurrence: None)
  Receive Date: 20120704
  Receipt Date: 20120702
  Transmission Date: 20120928
  Serious: Yes (Hospitalization)
  Sender: FDA-Public Use
  Company Number: US-AMGEN-USASP2012001276

PATIENT
  Age: 59 Year
  Sex: Female
  Weight: 78.5 kg

DRUGS (13)
  1. COREG [Concomitant]
     Dosage: 37.5 MG, TID
     Route: 048
     Dates: start: 20111111, end: 20120112
  2. LABETALOL HCL [Concomitant]
  3. LOSARTAN POTASSIUM [Concomitant]
  4. ISOSORBIDE [Concomitant]
  5. MINOXIDIL [Concomitant]
     Dosage: 10 MG, TID
     Route: 048
     Dates: start: 20111111, end: 20120112
  6. ASPIRIN [Concomitant]
  7. SENSIPAR [Suspect]
     Dosage: UNK
     Dates: start: 20110101
  8. NASACORT [Concomitant]
  9. CLONIDINE [Concomitant]
     Dosage: UNK
  10. SENSIPAR [Suspect]
     Indication: RENAL FAILURE CHRONIC
     Dosage: 30 MG, QD
     Route: 048
     Dates: start: 20111202
  11. RENAGEL [Concomitant]
     Indication: HYPERPHOSPHATAEMIA
     Dosage: 800 MG, UNK
     Route: 048
     Dates: start: 20110708
  12. PROCARDIA [Concomitant]
     Dosage: 90 MG, QD
     Route: 048
     Dates: start: 20110914, end: 20120220
  13. LISINOPRIL [Concomitant]
     Dosage: 20 MG, BID
     Route: 048
     Dates: start: 20110812, end: 20120307

REACTIONS (5)
  - DRUG INTOLERANCE [None]
  - TREMOR [None]
  - FEELING JITTERY [None]
  - DYSPNOEA [None]
  - ABDOMINAL DISCOMFORT [None]
